FAERS Safety Report 8127237-2 (Version None)
Quarter: 2012Q1

REPORT INFORMATION
  Report Type: 
  Country: None (occurrence: None)
  Receive Date: 20120210
  Receipt Date: 20120207
  Transmission Date: 20120608
  Serious: Yes (Other)
  Sender: FDA-Public Use
  Company Number: US-PFIZER INC-2012033762

PATIENT
  Sex: Female
  Weight: 74.376 kg

DRUGS (5)
  1. HYDROCHLOROTHIAZIDE [Concomitant]
     Indication: FLUID RETENTION
     Dosage: UNK
  2. COUMADIN [Concomitant]
     Indication: ANTICOAGULANT THERAPY
     Dosage: UNK
  3. LASIX [Concomitant]
     Indication: FLUID RETENTION
     Dosage: UNK
  4. INSULIN [Concomitant]
     Indication: DIABETES MELLITUS
     Dosage: UNK
  5. LIPITOR [Suspect]
     Indication: CARDIAC DISORDER
     Dosage: 40 MG, 1X/DAY
     Route: 048
     Dates: start: 20020101

REACTIONS (7)
  - RENAL DISORDER [None]
  - CARDIAC FAILURE [None]
  - BOWEL MOVEMENT IRREGULARITY [None]
  - FATIGUE [None]
  - CARDIAC DISORDER [None]
  - HEART RATE DECREASED [None]
  - VITAMIN D DECREASED [None]
